FAERS Safety Report 9332442 (Version 2)
Quarter: 2013Q2

REPORT INFORMATION
  Report Type: Spontaneous
  Country: US (occurrence: US)
  Receive Date: 20130606
  Receipt Date: 20130614
  Transmission Date: 20140414
  Serious: Yes (Death)
  Sender: FDA-Public Use
  Company Number: US-ROCHE-1233025

PATIENT
  Sex: Female

DRUGS (11)
  1. ZELBORAF [Suspect]
     Indication: MALIGNANT MELANOMA
     Route: 065
  2. ONDANSETRON [Concomitant]
     Indication: NAUSEA
     Route: 048
  3. MILK OF MAGNESIA [Concomitant]
     Indication: CONSTIPATION
     Route: 048
  4. PRILOSEC [Concomitant]
     Route: 048
  5. LORAZEPAM [Concomitant]
     Route: 048
  6. DOCUSATE SODIUM [Concomitant]
     Indication: CONSTIPATION
     Route: 048
  7. SENNA [Concomitant]
     Indication: CONSTIPATION
     Route: 048
  8. GABAPENTIN [Concomitant]
     Route: 048
  9. MORPHINE SULFATE [Concomitant]
     Indication: PAIN
     Route: 048
  10. OXYCODONE [Concomitant]
     Indication: PAIN
     Route: 048
  11. MIRALAX [Concomitant]
     Indication: CONSTIPATION
     Route: 048

REACTIONS (1)
  - Metastatic malignant melanoma [Fatal]
